FAERS Safety Report 5025626-6 (Version None)
Quarter: 2006Q2

REPORT INFORMATION
  Report Type: 
  Country: None (occurrence: None)
  Receive Date: 20060426
  Receipt Date: 20060314
  Transmission Date: 20061013
  Serious: Yes (Life-Threatening, Hospitalization, Other)
  Sender: FDA-Public Use
  Company Number: 2006036641

PATIENT
  Age: 56 Year
  Sex: Female
  Weight: 68.9467 kg

DRUGS (6)
  1. LYRICA [Suspect]
     Indication: FIBROMYALGIA
     Dates: start: 20060101, end: 20060101
  2. PROZAC [Concomitant]
  3. XANAX [Concomitant]
  4. LAMICTAL [Concomitant]
  5. ESTRATEST [Concomitant]
  6. CLARITIN [Concomitant]

REACTIONS (2)
  - HYPOMANIA [None]
  - SUICIDE ATTEMPT [None]
